FAERS Safety Report 5598358-3 (Version None)
Quarter: 2008Q1

REPORT INFORMATION
  Report Type: 
  Country: None (occurrence: None)
  Receive Date: 20080122
  Receipt Date: 20080114
  Transmission Date: 20080703
  Serious: Yes (Other)
  Sender: FDA-Public Use
  Company Number: US-AVENTIS-200810335US

PATIENT
  Sex: Female

DRUGS (2)
  1. LASIX [Suspect]
     Dosage: DOSE: UNK
  2. DIOVAN [Concomitant]
     Dosage: DOSE: UNK

REACTIONS (2)
  - ARRHYTHMIA [None]
  - THROMBOSIS [None]
